FAERS Safety Report 8984836 (Version 1)
Quarter: 2012Q4

REPORT INFORMATION
  Report Type: 
  Country: US (occurrence: US)
  Receive Date: 20121226
  Receipt Date: 20121226
  Transmission Date: 20130627
  Serious: No
  Sender: FDA-Public Use
  Company Number: US-BAYER-2012-130957

PATIENT
  Age: 26 Year
  Sex: Female
  Weight: 75 kg

DRUGS (3)
  1. BETASERON [Suspect]
     Dosage: 0.25 mg, QOD
     Route: 058
  2. NEURONTIN [Concomitant]
     Dosage: 300 mg, UNK
  3. MULTIVITAMIN [Concomitant]

REACTIONS (3)
  - Balance disorder [Unknown]
  - Influenza like illness [Unknown]
  - Dizziness [Unknown]
